FAERS Safety Report 16467587 (Version 1)
Quarter: 2019Q2

REPORT INFORMATION
  Report Type: Spontaneous
  Country: US (occurrence: US)
  Receive Date: 20190513
  Receipt Date: 20190513
  Transmission Date: 20190711
  Serious: No
  Sender: FDA-Public Use
  Company Number: None

PATIENT
  Age: 18 Year
  Sex: Male

DRUGS (1)
  1. REMICADE [Suspect]
     Active Substance: INFLIXIMAB
     Dosage: THERAPY START DATE MAY-2019
     Dates: end: 201904

REACTIONS (2)
  - Drug specific antibody [None]
  - Therapy change [None]

NARRATIVE: CASE EVENT DATE: 20190513
